FAERS Safety Report 10898840 (Version 4)
Quarter: 2015Q4

REPORT INFORMATION
  Report Type: Report from Study
  Country: FR (occurrence: FR)
  Receive Date: 20150309
  Receipt Date: 20151014
  Transmission Date: 20160304
  Serious: Yes (Hospitalization)
  Sender: FDA-Public Use
  Company Number: PHHO2015FR003028

PATIENT
  Age: 4 Year
  Sex: Female

DRUGS (3)
  1. AMN107 [Suspect]
     Active Substance: NILOTINIB
     Indication: GLIOMA
     Dosage: 350 MG/M2, QD
     Route: 048
     Dates: start: 20150210
  2. AMN107 [Suspect]
     Active Substance: NILOTINIB
     Dosage: 200 MG, QD
     Route: 048
     Dates: start: 20150220, end: 20150222
  3. VINBLASTINE SULFATE. [Suspect]
     Active Substance: VINBLASTINE SULFATE
     Indication: GLIOMA
     Dosage: 2.9 MG, QD (ON DAYS 1, 8, 15 AND 22 OF EACH CYCLE)
     Route: 042
     Dates: start: 20150210, end: 20150217

REACTIONS (3)
  - Hypertension [Recovered/Resolved]
  - Seizure [Recovered/Resolved]
  - Febrile neutropenia [Recovered/Resolved]

NARRATIVE: CASE EVENT DATE: 20150223
